FAERS Safety Report 23376323 (Version 2)
Quarter: 2024Q1

REPORT INFORMATION
  Report Type: Spontaneous
  Country: US (occurrence: US)
  Receive Date: 20240108
  Receipt Date: 20240111
  Transmission Date: 20240410
  Serious: No
  Sender: FDA-Public Use
  Company Number: US-ELI_LILLY_AND_COMPANY-US202401002942

PATIENT
  Age: 41 Year
  Sex: Female

DRUGS (1)
  1. ZEPBOUND [Suspect]
     Active Substance: TIRZEPATIDE
     Indication: Product used for unknown indication
     Dosage: 2.5 MG, UNKNOWN
     Route: 065
     Dates: start: 20231229

REACTIONS (10)
  - Extra dose administered [Unknown]
  - Peripheral coldness [Unknown]
  - Feeding disorder [Unknown]
  - Myalgia [Unknown]
  - Sleep disorder due to a general medical condition [Unknown]
  - Influenza like illness [Unknown]
  - Tenderness [Unknown]
  - Energy increased [Unknown]
  - Injection site pain [Unknown]
  - Nausea [Unknown]

NARRATIVE: CASE EVENT DATE: 20231229
